FAERS Safety Report 19695715 (Version 1)
Quarter: 2021Q3

REPORT INFORMATION
  Report Type: Spontaneous
  Country: US (occurrence: US)
  Receive Date: 20210813
  Receipt Date: 20210813
  Transmission Date: 20211014
  Serious: Yes (Other)
  Sender: FDA-Public Use
  Company Number: None

PATIENT
  Age: 70 Year
  Sex: Male
  Weight: 101.25 kg

DRUGS (6)
  1. METOPROLOL. [Concomitant]
     Active Substance: METOPROLOL
  2. ZICAM COLD REMEDY NO DRIP NASAL SPRAY [Suspect]
     Active Substance: HOMEOPATHICS
     Indication: NASAL CONGESTION
     Dosage: ?          OTHER ROUTE:SPRAY IN NOSE?
     Route: 045
     Dates: start: 20210812, end: 20210812
  3. BENICAR HCT [Concomitant]
     Active Substance: HYDROCHLOROTHIAZIDE\OLMESARTAN MEDOXOMIL
  4. LIPITOR [Concomitant]
     Active Substance: ATORVASTATIN CALCIUM
  5. ASPIRIN EC [Concomitant]
     Active Substance: ASPIRIN
  6. ELIQUIS [Concomitant]
     Active Substance: APIXABAN

REACTIONS (1)
  - Anosmia [None]

NARRATIVE: CASE EVENT DATE: 20210812
